FAERS Safety Report 9189164 (Version 2)
Quarter: 2013Q4

REPORT INFORMATION
  Report Type: Spontaneous
  Country: US (occurrence: US)
  Receive Date: 20130326
  Receipt Date: 20131022
  Transmission Date: 20140711
  Serious: Yes (Hospitalization)
  Sender: FDA-Public Use
  Company Number: US-BIOGENIDEC-2013BI026752

PATIENT
  Age: 68 Year
  Sex: Female

DRUGS (1)
  1. TYSABRI [Suspect]
     Indication: MULTIPLE SCLEROSIS
     Route: 042
     Dates: start: 20120920, end: 20121213

REACTIONS (10)
  - Brain operation [Recovered/Resolved]
  - Staphylococcal infection [Recovered/Resolved]
  - Pyrexia [Unknown]
  - Hydrocephalus [Not Recovered/Not Resolved]
  - Post procedural complication [Recovered/Resolved]
  - Device deployment issue [Unknown]
  - Stress fracture [Not Recovered/Not Resolved]
  - Drug ineffective [Unknown]
  - Abasia [Recovered/Resolved]
  - Cognitive disorder [Not Recovered/Not Resolved]
